FAERS Safety Report 12709641 (Version 1)
Quarter: 2016Q3

REPORT INFORMATION
  Report Type: Spontaneous
  Country: US (occurrence: US)
  Receive Date: 20160902
  Receipt Date: 20160902
  Transmission Date: 20161109
  Serious: Yes (Death, Hospitalization)
  Sender: FDA-Public Use
  Company Number: US-JNJFOC-20160825800

PATIENT
  Age: 76 Year
  Sex: Male

DRUGS (1)
  1. XARELTO [Suspect]
     Active Substance: RIVAROXABAN
     Indication: PRODUCT USED FOR UNKNOWN INDICATION
     Route: 048
     Dates: start: 201312, end: 201408

REACTIONS (3)
  - Lower gastrointestinal haemorrhage [Unknown]
  - Death [Fatal]
  - Ischaemic stroke [Unknown]

NARRATIVE: CASE EVENT DATE: 20140813
